FAERS Safety Report 10661395 (Version 1)
Quarter: 2014Q4

REPORT INFORMATION
  Report Type: Spontaneous
  Country: US (occurrence: None)
  Receive Date: 20141217
  Receipt Date: 20141217
  Transmission Date: 20150529
  Serious: Yes (Other)
  Sender: FDA-Public Use
  Company Number: None

PATIENT
  Age: 43 Year
  Sex: Male
  Weight: 94.35 kg

DRUGS (1)
  1. COPAXONE [Suspect]
     Active Substance: GLATIRAMER ACETATE
     Indication: MULTIPLE SCLEROSIS
     Dosage: 1 SYRINGE (40MG), TIW, SUBCUTANEOUS?
     Route: 058
     Dates: start: 20141201, end: 20141210

REACTIONS (2)
  - Throat tightness [None]
  - Sinus disorder [None]

NARRATIVE: CASE EVENT DATE: 20141208
